FAERS Safety Report 5197770-4 (Version None)
Quarter: 2006Q4

REPORT INFORMATION
  Report Type: 
  Country: None (occurrence: None)
  Receive Date: 20061228
  Receipt Date: 20061219
  Transmission Date: 20070319
  Serious: Yes (Death)
  Sender: FDA-Public Use
  Company Number: 2006SI011668

PATIENT
  Age: 41 Year
  Sex: Male
  Weight: 77.3 kg

DRUGS (22)
  1. SPIRONOLACTONE [Suspect]
     Indication: DIURETIC THERAPY
     Dosage: QD; PO
     Route: 048
     Dates: start: 20040401
  2. SU-011, 248 (SUNITINIB MALATE) (NO PREF. NAME) [Suspect]
     Indication: GASTROINTESTINAL STROMAL TUMOUR
     Dosage: 25 MG; BID; PO
     Route: 048
     Dates: start: 20050726, end: 20051113
  3. FUROSEMIDE [Suspect]
     Indication: DIURETIC THERAPY
     Dosage: QD, PO
     Route: 048
     Dates: start: 20040401
  4. WARFARIN SODIUM [Concomitant]
  5. LORAZEPAM [Concomitant]
  6. IRON [Concomitant]
  7. RABEPRAZOLE SODIUM [Concomitant]
  8. ACETAMINOPHEN [Concomitant]
  9. MORPHINE [Concomitant]
  10. METHYLPHENIDATE HCL [Concomitant]
  11. CITALOPRAM HYDROBROMIDE [Concomitant]
  12. MAGNESIUM [Concomitant]
  13. OXAZEPAM [Concomitant]
  14. BISACODYL [Concomitant]
  15. ENOXAPARIN SODIUM [Concomitant]
  16. LEVOMEPROMAZINE [Concomitant]
  17. LEVOTHYROXINE SODIUM [Concomitant]
  18. DIMENHYDRINATE [Concomitant]
  19. SENNOSIDE [Concomitant]
  20. PANTOPRAZOLE SODIUM [Concomitant]
  21. IRON SULFATETHIAMIN COMPOUND TAB [Concomitant]
  22. SODIUM POLYSTYRENE SULFONATE [Concomitant]

REACTIONS (10)
  - ABDOMINAL PAIN [None]
  - ANAEMIA [None]
  - ASCITES [None]
  - CONSTIPATION [None]
  - DEPRESSION [None]
  - DISEASE PROGRESSION [None]
  - FATIGUE [None]
  - HYPONATRAEMIA [None]
  - OEDEMA PERIPHERAL [None]
  - PULMONARY OEDEMA [None]
